FAERS Safety Report 25130581 (Version 1)
Quarter: 2025Q1

REPORT INFORMATION
  Report Type: Spontaneous
  Country: DE (occurrence: DE)
  Receive Date: 20250327
  Receipt Date: 20250327
  Transmission Date: 20250409
  Serious: Yes (Hospitalization)
  Sender: AMGEN
  Company Number: DE-002147023-NVSC2025DE047481

PATIENT
  Sex: Female

DRUGS (1)
  1. AIMOVIG [Suspect]
     Active Substance: ERENUMAB-AOOE
     Indication: Migraine
     Route: 065
     Dates: start: 20250220

REACTIONS (9)
  - Epstein-Barr virus infection [Unknown]
  - Abdominal pain [Unknown]
  - Splenomegaly [Not Recovered/Not Resolved]
  - Haematoma [Not Recovered/Not Resolved]
  - Splenic rupture [Not Recovered/Not Resolved]
  - Dyspnoea [Unknown]
  - Blood disorder [Unknown]
  - Fatigue [Unknown]
  - Pain [Unknown]

NARRATIVE: CASE EVENT DATE: 20250227
